FAERS Safety Report 11995934 (Version 1)
Quarter: 2016Q1

REPORT INFORMATION
  Report Type: Spontaneous
  Country: CH (occurrence: CH)
  Receive Date: 20160203
  Receipt Date: 20160203
  Transmission Date: 20160526
  Serious: Yes (Hospitalization)
  Sender: FDA-Public Use
  Company Number: CH-TEVA-630631ISR

PATIENT
  Age: 25 Year
  Sex: Male

DRUGS (6)
  1. INVEGA [Suspect]
     Active Substance: PALIPERIDONE
     Dosage: 9 MILLIGRAM DAILY; UNSPECIFIED STRENGTH
     Route: 048
     Dates: start: 20151230, end: 20160106
  2. SEVREDOL [Suspect]
     Active Substance: MORPHINE
     Dosage: 60 MILLIGRAM DAILY; UNSPECIFIED STRENGTH
     Route: 048
     Dates: start: 20151229, end: 20160106
  3. TEMESTA [Concomitant]
     Active Substance: LORAZEPAM
     Dosage: 4 MILLIGRAM DAILY; UNSPECIFIED STRENGTH
     Route: 048
  4. CLEXANE [Concomitant]
     Active Substance: ENOXAPARIN SODIUM
     Dosage: 40 MILLIGRAM DAILY; UNSPECIFIED STRENGTH
     Route: 058
  5. INVEGA [Suspect]
     Active Substance: PALIPERIDONE
     Indication: SCHIZOPHRENIA
     Dosage: 6 MILLIGRAM DAILY; UNSPECIFIED STRENGTH
     Route: 048
     Dates: start: 20151224, end: 20151230
  6. IRFEN [Suspect]
     Active Substance: IBUPROFEN
     Dosage: 1200 MILLIGRAM DAILY; UNSPECIFIED STRENGTH
     Route: 048
     Dates: start: 20151229, end: 20160105

REACTIONS (1)
  - Inappropriate antidiuretic hormone secretion [Recovered/Resolved]

NARRATIVE: CASE EVENT DATE: 20160103
